FAERS Safety Report 5661528-X (Version None)
Quarter: 2008Q1

REPORT INFORMATION
  Report Type: 
  Country: None (occurrence: None)
  Receive Date: 20080312
  Receipt Date: 20080227
  Transmission Date: 20080703
  Serious: Yes (Hospitalization)
  Sender: FDA-Public Use
  Company Number: MX-AMGEN-US252593

PATIENT
  Sex: Male

DRUGS (6)
  1. PANITUMUMAB [Suspect]
     Indication: COLORECTAL CANCER
     Route: 042
     Dates: start: 20070503, end: 20070508
  2. PANITUMUMAB [Suspect]
     Route: 042
     Dates: start: 20071029, end: 20071029
  3. OXALIPLATIN [Suspect]
  4. LEUCOVORIN CALCIUM [Suspect]
  5. FLUOROURACIL [Suspect]
     Route: 040
  6. FLUOROURACIL [Suspect]

REACTIONS (2)
  - ANAL HAEMORRHAGE [None]
  - NEUTROPENIA [None]
